FAERS Safety Report 9435393 (Version 1)
Quarter: 2013Q3

REPORT INFORMATION
  Report Type: Report from Study
  Country: CA (occurrence: CA)
  Receive Date: 20130801
  Receipt Date: 20130801
  Transmission Date: 20140515
  Serious: Yes (Other)
  Sender: FDA-Public Use
  Company Number: CA-JNJFOC-20130716921

PATIENT
  Age: 39 Year
  Sex: Female
  Weight: 80 kg

DRUGS (3)
  1. REMICADE [Suspect]
     Indication: CROHN^S DISEASE
     Dosage: 18TH INFUSION
     Route: 042
  2. PAXIL [Concomitant]
     Route: 048
  3. PRENATAL VITAMINS [Concomitant]
     Route: 065

REACTIONS (1)
  - Systemic lupus erythematosus [Unknown]
